FAERS Safety Report 23440615 (Version 1)
Quarter: 2024Q1

REPORT INFORMATION
  Report Type: Spontaneous
  Country: RO (occurrence: RO)
  Receive Date: 20240125
  Receipt Date: 20240125
  Transmission Date: 20240409
  Serious: Yes (Other)
  Sender: FDA-Public Use
  Company Number: RO-AUROBINDO-AUR-APL-2024-002493

PATIENT
  Age: 27 Year
  Sex: Female

DRUGS (2)
  1. NAPROXEN [Suspect]
     Active Substance: NAPROXEN
     Indication: Myalgia
     Dosage: 250 MILLIGRAM, TWO TIMES A DAY
     Route: 065
  2. DEXAMETHASONE [Suspect]
     Active Substance: DEXAMETHASONE
     Indication: Eosinophilia
     Dosage: 8 MILLIGRAM, ONCE A DAY FOR 7 DAYS
     Route: 065

REACTIONS (1)
  - Drug ineffective [Unknown]
